FAERS Safety Report 25983303 (Version 2)
Quarter: 2025Q4

REPORT INFORMATION
  Report Type: Spontaneous
  Country: EU (occurrence: EU)
  Receive Date: 20251031
  Receipt Date: 20251110
  Transmission Date: 20260118
  Serious: Yes (Other)
  Sender: TEVA
  Company Number: EU-TEVA-VS-3384474

PATIENT
  Age: 50 Year
  Sex: Female

DRUGS (1)
  1. COPAXONE [Suspect]
     Active Substance: GLATIRAMER ACETATE
     Indication: Multiple sclerosis
     Route: 065

REACTIONS (11)
  - Neoplasm [Recovering/Resolving]
  - Injection site mass [Recovering/Resolving]
  - Pain in extremity [Unknown]
  - Dyspnoea [Recovering/Resolving]
  - Hot flush [Recovering/Resolving]
  - Wrong technique in product usage process [Unknown]
  - Gait inability [Unknown]
  - Immediate post-injection reaction [Recovering/Resolving]
  - Feeling abnormal [Recovering/Resolving]
  - Peripheral swelling [Unknown]
  - Injection site erythema [Recovering/Resolving]
